FAERS Safety Report 6203651-7 (Version None)
Quarter: 2009Q2

REPORT INFORMATION
  Report Type: 
  Country: None (occurrence: None)
  Receive Date: 20090521
  Receipt Date: 20090505
  Transmission Date: 20091009
  Serious: Yes (Hospitalization, Disabling, Other)
  Sender: FDA-Public Use
  Company Number: DSA_33501_2009

PATIENT
  Sex: Female
  Weight: 56.6996 kg

DRUGS (5)
  1. VASOTEC [Suspect]
     Indication: CARDIAC FAILURE
     Dosage: (5 MG BID), (DF)
  2. ISOPTIN /00014301/ [Concomitant]
  3. PREVACID [Concomitant]
  4. INDOCIN /00003801/ [Concomitant]
  5. SYNTHROID [Concomitant]

REACTIONS (6)
  - ATRIAL FIBRILLATION [None]
  - DYSGRAPHIA [None]
  - MUSCULAR WEAKNESS [None]
  - PRODUCT SUBSTITUTION ISSUE [None]
  - PULMONARY FIBROSIS [None]
  - WEIGHT DECREASED [None]
